FAERS Safety Report 20177005 (Version 1)
Quarter: 2021Q4

REPORT INFORMATION
  Report Type: Spontaneous
  Country: US (occurrence: None)
  Receive Date: 20211213
  Receipt Date: 20211213
  Transmission Date: 20220303
  Serious: Yes (Hospitalization)
  Sender: FDA-Public Use
  Company Number: None

PATIENT
  Sex: Male

DRUGS (1)
  1. TEMOZOLOMIDE [Suspect]
     Active Substance: TEMOZOLOMIDE
     Indication: Central nervous system neoplasm
     Dosage: OTHER QUANTITY : 2 CAPSULES ;?OTHER FREQUENCY : 1-5 EVERY 28 DAYS;?
     Route: 048
     Dates: start: 20210731

REACTIONS (1)
  - Thrombosis [None]
